FAERS Safety Report 7119297-2 (Version None)
Quarter: 2010Q4

REPORT INFORMATION
  Report Type: 
  Country: None (occurrence: None)
  Receive Date: 20101123
  Receipt Date: 20101005
  Transmission Date: 20110411
  Serious: Yes (Hospitalization)
  Sender: FDA-Public Use
  Company Number: DK-B.I. PHARMACEUTICALS,INC./RIDGEFIELD-2010-SW-00367DB

PATIENT
  Age: 84 Year
  Sex: Female

DRUGS (6)
  1. SPIRIVA [Suspect]
     Indication: CHRONIC OBSTRUCTIVE PULMONARY DISEASE
     Dosage: FORMULATION; INHAL.
     Dates: start: 20081202
  2. LIVIAL [Concomitant]
     Dates: start: 20070928
  3. PREDNISOLONE [Concomitant]
     Dates: start: 20100222
  4. BERODUAL [Concomitant]
     Dates: start: 20080530
  5. MYCOLYSIN [Concomitant]
     Dates: start: 20060405
  6. SYMBICORT [Concomitant]
     Dates: start: 20050101

REACTIONS (2)
  - CONDITION AGGRAVATED [None]
  - MEDICATION ERROR [None]
